FAERS Safety Report 14528984 (Version 5)
Quarter: 2018Q2

REPORT INFORMATION
  Report Type: Spontaneous
  Country: US (occurrence: US)
  Receive Date: 20180214
  Receipt Date: 20180424
  Transmission Date: 20180711
  Serious: Yes (Disabling, Other)
  Sender: FDA-Public Use
  Company Number: US-009507513-1802USA004394

PATIENT
  Age: 47 Year
  Sex: Female
  Weight: 102.9 kg

DRUGS (16)
  1. MIRALAX [Concomitant]
     Active Substance: POLYETHYLENE GLYCOL 3350
     Dosage: 1 CAPFUL (17GM) IN 8 ONCES OF WATER, JUICE, OR TEA AND DRINK DAILY; RX
     Route: 048
  2. DEXAMETHASONE. [Concomitant]
     Active Substance: DEXAMETHASONE
     Dosage: 8 MG (2 TABLETS), DAILY ON DAY 2 +3 AFTER CHEMO; RX
     Route: 048
  3. LORAZEPAM. [Concomitant]
     Active Substance: LORAZEPAM
     Indication: NAUSEA
     Dosage: 0.5 MG(1 TABLET) UNDERNEATH TONGUE AND ALLOW TO DISSOLVE EVERY 6 HOURS AS NEEDED; RX
     Route: 060
  4. IBUPROFEN. [Concomitant]
     Active Substance: IBUPROFEN
     Indication: PAIN
     Dosage: 600MG (3 TABLETS), EACH 6 HOURS AS NEEDED; RX
     Route: 048
  5. LIDOCAINE (+) PRILOCAINE [Concomitant]
     Dosage: A GENEROUS AMUNT OVER PORT AND COVER WITH SARAN WRAP 2 HOURS PRIOR TO BLOOD DRAWS AND CHEMOTHERAPY
  6. KEYTRUDA [Suspect]
     Active Substance: PEMBROLIZUMAB
     Indication: ENDOMETRIAL ADENOCARCINOMA
     Dosage: 200 MG, EVERY 21 DAYS
     Route: 042
     Dates: start: 20170927, end: 20170927
  7. PROCHLORPERAZINE MALEATE. [Concomitant]
     Active Substance: PROCHLORPERAZINE MALEATE
     Indication: NAUSEA
     Dosage: 10MG(1 TABLET), EVERY 6 HOURS AS NEEDED; RX
     Route: 048
  8. TRAMADOL HYDROCHLORIDE. [Concomitant]
     Active Substance: TRAMADOL HYDROCHLORIDE
     Dosage: 50MG (1 TABLET), 3 TIMES DAILY AS NEEDED; RX
     Route: 048
  9. GABAPENTIN. [Concomitant]
     Active Substance: GABAPENTIN
     Indication: NEURALGIA
     Dosage: 300MG (1 CAPSULE), THREE TIMES A DAY; RX
     Route: 048
  10. CARBOPLATIN (+) PACLITAXEL [Suspect]
     Active Substance: CARBOPLATIN\PACLITAXEL
     Indication: ENDOMETRIAL ADENOCARCINOMA
     Dosage: UNK
     Dates: start: 20171206
  11. ACETAMINOPHEN (+) HYDROCODONE BITARTRATE [Concomitant]
     Active Substance: ACETAMINOPHEN\HYDROCODONE BITARTRATE
     Dosage: 1 TABLET, EVERY 4 TO 6 HOURS AS NEEDED FOR PAIN; RX
     Route: 048
  12. KEYTRUDA [Suspect]
     Active Substance: PEMBROLIZUMAB
     Dosage: 200 MG, EVERY 21 DAYS
     Route: 042
     Dates: start: 20171018, end: 20171018
  13. METAXALONE. [Concomitant]
     Active Substance: METAXALONE
     Dosage: 1-2 TABLETS, DAILY AS DIRECTED ; RX
     Route: 048
  14. CYCLOBENZAPRINE HYDROCHLORIDE. [Concomitant]
     Active Substance: CYCLOBENZAPRINE HYDROCHLORIDE
     Dosage: 5MG (1 TABLET), 3 TIMES DAILY; RX
     Route: 048
  15. ZOFRAN [Concomitant]
     Active Substance: ONDANSETRON HYDROCHLORIDE
     Indication: NAUSEA
     Dosage: 4MG (1 TABLET) EVERY 6 HOURS AS NEEDED
     Route: 048
  16. PYRIDOXINE [Concomitant]
     Active Substance: PYRIDOXINE
     Dosage: 100MG (1 TABLET) TWICE DAILY; RX
     Route: 048

REACTIONS (4)
  - Hysterectomy [Unknown]
  - Hepatitis C [Not Recovered/Not Resolved]
  - Salpingo-oophorectomy bilateral [Unknown]
  - Product use in unapproved indication [Unknown]

NARRATIVE: CASE EVENT DATE: 20171107
